FAERS Safety Report 25950995 (Version 2)
Quarter: 2025Q4

REPORT INFORMATION
  Report Type: Spontaneous
  Country: EU (occurrence: EU)
  Receive Date: 20251023
  Receipt Date: 20251104
  Transmission Date: 20260118
  Serious: Yes (Hospitalization, Other)
  Sender: ALK-ABELLO
  Company Number: None

PATIENT

DRUGS (3)
  1. ACARIZAX [Suspect]
     Active Substance: DERMATOPHAGOIDES FARINAE\DERMATOPHAGOIDES PTERONYSSINUS
     Indication: Immune tolerance induction
     Dosage: 12 SQ-HDM
     Route: 060
     Dates: start: 20251007
  2. BETULA PENDULA POLLEN [Suspect]
     Active Substance: BETULA PENDULA POLLEN
     Indication: Immune tolerance induction
     Dosage: 12 SQ-BET
     Route: 060
     Dates: start: 20251007
  3. BETULA PENDULA POLLEN [Suspect]
     Active Substance: BETULA PENDULA POLLEN
     Dosage: 12 SQ-BET
     Route: 060
     Dates: start: 20251007

REACTIONS (7)
  - Syncope [Recovered/Resolved]
  - Pulse abnormal [Recovered/Resolved]
  - Heart rate decreased [Unknown]
  - Pallor [Recovered/Resolved]
  - Feeling hot [Recovered/Resolved]
  - Malaise [Recovered/Resolved]
  - Drug monitoring procedure not performed [Unknown]

NARRATIVE: CASE EVENT DATE: 20251007
